FAERS Safety Report 19804383 (Version 1)
Quarter: 2021Q3

REPORT INFORMATION
  Report Type: Spontaneous
  Country: US (occurrence: US)
  Receive Date: 20210908
  Receipt Date: 20210908
  Transmission Date: 20211014
  Serious: No
  Sender: FDA-Public Use
  Company Number: US-FARMAPROD-202105-0834

PATIENT
  Age: 78 Year
  Sex: Female

DRUGS (9)
  1. BUTALBITAL/ACETAMINOPHEN/CAFFEIN/CODEIN [Concomitant]
  2. VALIUM [Concomitant]
     Active Substance: DIAZEPAM
  3. OXERVATE [Suspect]
     Active Substance: CENEGERMIN-BKBJ
     Indication: NEUROTROPHIC KERATOPATHY
     Route: 047
     Dates: start: 20210518
  4. ROSUVASTATIN CALCIUM. [Concomitant]
     Active Substance: ROSUVASTATIN CALCIUM
  5. PROLIA [Concomitant]
     Active Substance: DENOSUMAB
     Dosage: SYRINGE
  6. SINGULAIR [Concomitant]
     Active Substance: MONTELUKAST SODIUM
  7. RESTASIS [Concomitant]
     Active Substance: CYCLOSPORINE
  8. TIZANIDINE HCL [Concomitant]
     Active Substance: TIZANIDINE HYDROCHLORIDE
  9. SYNTHROID [Concomitant]
     Active Substance: LEVOTHYROXINE SODIUM

REACTIONS (2)
  - Eyelid irritation [Unknown]
  - Product use issue [Unknown]

NARRATIVE: CASE EVENT DATE: 20210520
